FAERS Safety Report 12909988 (Version 1)
Quarter: 2016Q4

REPORT INFORMATION
  Report Type: Spontaneous
  Country: US (occurrence: US)
  Receive Date: 20161104
  Receipt Date: 20161104
  Transmission Date: 20170207
  Serious: Yes (Other)
  Sender: FDA-Public Use
  Company Number: US-AMGEN-USASP2016150206

PATIENT
  Age: 61 Year
  Sex: Female
  Weight: 34.47 kg

DRUGS (8)
  1. CALCIUM [Concomitant]
     Active Substance: CALCIUM
  2. VITAMIN D [Concomitant]
     Active Substance: CHOLECALCIFEROL
  3. PROLIA [Suspect]
     Active Substance: DENOSUMAB
     Indication: OSTEOPOROSIS POSTMENOPAUSAL
     Dosage: UNK
     Route: 065
  4. VITAMIN B [Concomitant]
     Active Substance: VITAMIN B
  5. PHENOBARBITAL. [Concomitant]
     Active Substance: PHENOBARBITAL
  6. CITALOPRAM [Concomitant]
     Active Substance: CITALOPRAM HYDROBROMIDE
  7. TOPAMAX [Concomitant]
     Active Substance: TOPIRAMATE
  8. ATORVASTATIN [Concomitant]
     Active Substance: ATORVASTATIN

REACTIONS (5)
  - Osteomyelitis [Not Recovered/Not Resolved]
  - Tooth extraction [Unknown]
  - Pain [Recovered/Resolved]
  - Endodontic procedure [Unknown]
  - Weight decreased [Unknown]

NARRATIVE: CASE EVENT DATE: 20160831
